FAERS Safety Report 21608579 (Version 1)
Quarter: 2022Q4

REPORT INFORMATION
  Report Type: Spontaneous
  Country: US (occurrence: None)
  Receive Date: 20221116
  Receipt Date: 20221116
  Transmission Date: 20230112
  Serious: No
  Sender: FDA-Public Use
  Company Number: None

PATIENT
  Sex: Female

DRUGS (1)
  1. HUMIRA [Suspect]
     Active Substance: ADALIMUMAB
     Indication: Connective tissue disorder
     Dosage: 40 MG EVERY 14 DAYS SUABCUTANEOUS
     Route: 058
     Dates: start: 20220902

REACTIONS (1)
  - Drug ineffective [None]
